FAERS Safety Report 16089411 (Version 1)
Quarter: 2019Q1

REPORT INFORMATION
  Report Type: Report from Study
  Country: US (occurrence: US)
  Receive Date: 20190319
  Receipt Date: 20190319
  Transmission Date: 20190418
  Serious: Yes (Hospitalization)
  Sender: FDA-Public Use
  Company Number: US-JNJFOC-20190322914

PATIENT
  Age: 89 Year
  Sex: Male

DRUGS (6)
  1. IMBRUVICA [Suspect]
     Active Substance: IBRUTINIB
     Indication: NON-HODGKIN^S LYMPHOMA
     Route: 048
     Dates: start: 20190119
  2. REMERON [Concomitant]
     Active Substance: MIRTAZAPINE
  3. MIDODRINE [Concomitant]
     Active Substance: MIDODRINE
  4. FIBER [Concomitant]
     Active Substance: PSYLLIUM HUSK
  5. ADULT MULTIVITAMIN [Concomitant]
  6. VITAMIN B12 [Concomitant]
     Active Substance: CYANOCOBALAMIN

REACTIONS (2)
  - Orthostatic hypotension [Recovering/Resolving]
  - Fall [Unknown]

NARRATIVE: CASE EVENT DATE: 20190129
